FAERS Safety Report 8415651-7 (Version None)
Quarter: 2012Q2

REPORT INFORMATION
  Report Type: 
  Country: None (occurrence: None)
  Receive Date: 20120606
  Receipt Date: 20120531
  Transmission Date: 20120825
  Serious: Yes (Other)
  Sender: FDA-Public Use
  Company Number: PHHY2012JP047385

PATIENT
  Age: 24 Year
  Sex: Female

DRUGS (1)
  1. CLOZARIL [Suspect]
     Indication: SCHIZOPHRENIA
     Dosage: 350 MG, DAILY
     Route: 048
     Dates: start: 20120229

REACTIONS (2)
  - INTENTIONAL SELF-INJURY [None]
  - SUICIDE ATTEMPT [None]
